FAERS Safety Report 21036168 (Version 1)
Quarter: 2022Q3

REPORT INFORMATION
  Report Type: Spontaneous
  Country: US (occurrence: US)
  Receive Date: 20220701
  Receipt Date: 20220701
  Transmission Date: 20221026
  Serious: No
  Sender: FDA-Public Use
  Company Number: US-THERAPEUTICSMD-2021TMD02312

PATIENT
  Age: 61 Year
  Sex: Female
  Weight: 86.213 kg

DRUGS (11)
  1. IMVEXXY [Suspect]
     Active Substance: ESTRADIOL
     Indication: Vulvovaginal dryness
     Dosage: 4 ?G, 2X/WEEK BEFORE BED
     Route: 067
     Dates: start: 202105, end: 202107
  2. IMVEXXY [Suspect]
     Active Substance: ESTRADIOL
     Indication: Vulvovaginal discomfort
     Dosage: 4 ?G, EVERY 4 DAYS BEFORE BED
     Route: 067
     Dates: start: 202107, end: 202108
  3. IMVEXXY [Suspect]
     Active Substance: ESTRADIOL
     Dosage: 4 ?G, 2X/WEEK BEFORE BED ON MONDAYS AND FRIDAYS
     Route: 067
     Dates: start: 202108
  4. KEVZARA [Suspect]
     Active Substance: SARILUMAB
     Indication: Rheumatoid arthritis
     Dosage: 200 MG, EVERY OTHER WEEK
     Route: 058
     Dates: start: 20210728, end: 2021
  5. KEVZARA [Suspect]
     Active Substance: SARILUMAB
     Indication: Vulvovaginal dryness
  6. KEVZARA [Suspect]
     Active Substance: SARILUMAB
     Indication: Vulvovaginal discomfort
  7. VITAMINS [Concomitant]
     Active Substance: VITAMINS
  8. FOLIC ACID [Concomitant]
     Active Substance: FOLIC ACID
  9. VITAMIN B [Concomitant]
     Active Substance: VITAMIN B
  10. CALCIUM [Concomitant]
     Active Substance: CALCIUM
  11. VITAMIN D [Concomitant]
     Active Substance: VITAMIN D NOS

REACTIONS (2)
  - Night sweats [Recovering/Resolving]
  - Off label use [Recovered/Resolved]

NARRATIVE: CASE EVENT DATE: 20210701
